FAERS Safety Report 9157762 (Version 1)
Quarter: 2013Q1

REPORT INFORMATION
  Report Type: Spontaneous
  Country: US (occurrence: None)
  Receive Date: 20130311
  Receipt Date: 20130311
  Transmission Date: 20140127
  Serious: Yes (Other)
  Sender: FDA-Public Use
  Company Number: None

PATIENT
  Age: 45 Year
  Sex: Female
  Weight: 56.7 kg

DRUGS (1)
  1. BENADRYL [Suspect]
     Indication: SLEEP DISORDER
     Route: 048
     Dates: start: 20130109, end: 20130308

REACTIONS (11)
  - Sinus disorder [None]
  - Swelling [None]
  - Nasal obstruction [None]
  - Aptyalism [None]
  - Ageusia [None]
  - Anosmia [None]
  - Skin swelling [None]
  - Insomnia [None]
  - Dry mouth [None]
  - Drug hypersensitivity [None]
  - No therapeutic response [None]
